FAERS Safety Report 24604109 (Version 5)
Quarter: 2025Q1

REPORT INFORMATION
  Report Type: Report from Study
  Country: US (occurrence: US)
  Receive Date: 20241111
  Receipt Date: 20250103
  Transmission Date: 20250409
  Serious: Yes (Hospitalization, Other)
  Sender: TAKEDA
  Company Number: US-TAKEDA-2024TUS110641

PATIENT
  Age: 47 Year
  Sex: Male
  Weight: 110 kg

DRUGS (2)
  1. ADAMTS13, RECOMBINANT-KRHN [Suspect]
     Active Substance: ADAMTS13, RECOMBINANT-KRHN
     Indication: Thrombotic thrombocytopenic purpura
     Dosage: 4400 INTERNATIONAL UNIT, 1/WEEK
     Dates: start: 202402
  2. ADAMTS13, RECOMBINANT-KRHN [Suspect]
     Active Substance: ADAMTS13, RECOMBINANT-KRHN
     Indication: Congenital thrombotic thrombocytopenic purpura
     Dosage: 4400 MICROGRAM, 1/WEEK

REACTIONS (11)
  - Loss of consciousness [Unknown]
  - Cerebrovascular accident [Unknown]
  - Syncope [Recovered/Resolved]
  - Anxiety [Unknown]
  - Poor venous access [Unknown]
  - Contusion [Unknown]
  - Infusion site scar [Unknown]
  - Thirst [Unknown]
  - Incorrect dose administered [Unknown]
  - Inappropriate schedule of product administration [Unknown]
  - Dizziness [Unknown]

NARRATIVE: CASE EVENT DATE: 20241101
